FAERS Safety Report 16750236 (Version 2)
Quarter: 2019Q3

REPORT INFORMATION
  Report Type: Report from Study
  Country: CA (occurrence: CA)
  Receive Date: 20190828
  Receipt Date: 20190902
  Transmission Date: 20191005
  Serious: Yes (Other)
  Sender: FDA-Public Use
  Company Number: CA-JNJFOC-20190625852

PATIENT
  Age: 5 Decade
  Sex: Female
  Weight: 58.06 kg

DRUGS (1)
  1. STELARA [Suspect]
     Active Substance: USTEKINUMAB
     Indication: PSORIASIS
     Route: 058
     Dates: start: 20170426

REACTIONS (3)
  - Mouth ulceration [Unknown]
  - Psoriasis [Not Recovered/Not Resolved]
  - Pulmonary mycosis [Unknown]
